FAERS Safety Report 8814421 (Version 1)
Quarter: 2012Q4

REPORT INFORMATION
  Report Type: Spontaneous
  Country: US (occurrence: None)
  Receive Date: 20120927
  Receipt Date: 20120927
  Transmission Date: 20130627
  Serious: No
  Sender: FDA-Public Use
  Company Number: None

PATIENT
  Age: 55 Year
  Sex: Male
  Weight: 85 kg

DRUGS (1)
  1. TELAPREVIR [Suspect]
     Dosage: 750 MG TID PO
     Route: 048
     Dates: start: 20120614

REACTIONS (2)
  - Pancytopenia [None]
  - Anaemia [None]
